FAERS Safety Report 11761322 (Version 3)
Quarter: 2015Q4

REPORT INFORMATION
  Report Type: Spontaneous
  Country: US (occurrence: US)
  Receive Date: 20151120
  Receipt Date: 20151210
  Transmission Date: 20160304
  Serious: Yes (Other)
  Sender: FDA-Public Use
  Company Number: US-GLAXOSMITHKLINE-US2015164458

PATIENT
  Age: 72 Year
  Sex: Female

DRUGS (16)
  1. FOLIC ACID. [Concomitant]
     Active Substance: FOLIC ACID
  2. LYRICA [Concomitant]
     Active Substance: PREGABALIN
  3. PROTONIX [Concomitant]
     Active Substance: PANTOPRAZOLE SODIUM
  4. ASPIRIN. [Concomitant]
     Active Substance: ASPIRIN
  5. CLOZEPAM [Concomitant]
  6. RESTORIL [Concomitant]
     Active Substance: TEMAZEPAM
  7. ATENOLOL. [Concomitant]
     Active Substance: ATENOLOL
  8. SPIRIVA [Concomitant]
     Active Substance: TIOTROPIUM BROMIDE MONOHYDRATE
  9. BREO ELLIPTA [Suspect]
     Active Substance: FLUTICASONE FUROATE\VILANTEROL TRIFENATATE
     Indication: ASTHMA
  10. VENTOLIN HFA [Suspect]
     Active Substance: ALBUTEROL SULFATE
     Indication: PRODUCT USED FOR UNKNOWN INDICATION
     Dosage: 2 PUFF(S), PRN
  11. ASTELIN [Concomitant]
     Active Substance: AZELASTINE HYDROCHLORIDE
  12. LEVOTHYROXINE. [Concomitant]
     Active Substance: LEVOTHYROXINE
  13. MELATONIN [Concomitant]
     Active Substance: MELATONIN
  14. PRAVACHOL [Concomitant]
     Active Substance: PRAVASTATIN SODIUM
  15. BREO ELLIPTA [Suspect]
     Active Substance: FLUTICASONE FUROATE\VILANTEROL TRIFENATATE
     Indication: CHRONIC OBSTRUCTIVE PULMONARY DISEASE
     Dosage: 1 PUFF(S), QD
     Dates: start: 201509
  16. TRAVATAN Z [Concomitant]
     Active Substance: TRAVOPROST

REACTIONS (2)
  - Urticaria [Recovered/Resolved]
  - Diabetes mellitus [Unknown]

NARRATIVE: CASE EVENT DATE: 201509
